FAERS Safety Report 21891526 (Version 1)
Quarter: 2023Q1

REPORT INFORMATION
  Report Type: Spontaneous
  Country: US (occurrence: None)
  Receive Date: 20230118
  Receipt Date: 20230118
  Transmission Date: 20230417
  Serious: Yes (Death)
  Sender: FDA-Public Use
  Company Number: None

PATIENT
  Age: 78 Year
  Sex: Male

DRUGS (1)
  1. LUTETIUM LU-177 VIPIVOTIDE TETRAXETAN [Suspect]
     Active Substance: LUTETIUM LU-177 VIPIVOTIDE TETRAXETAN
     Indication: Prostate cancer metastatic
     Dosage: OTHER QUANTITY : 196.4 MCI;?FREQUENCY : ONCE;?
     Route: 042
     Dates: start: 20221114, end: 20221114

REACTIONS (1)
  - Death [None]

NARRATIVE: CASE EVENT DATE: 20221114
